FAERS Safety Report 6354034-0 (Version None)
Quarter: 2009Q3

REPORT INFORMATION
  Report Type: 
  Country: None (occurrence: None)
  Receive Date: 20090914
  Receipt Date: 20070605
  Transmission Date: 20100115
  Serious: Yes (Hospitalization, Other)
  Sender: FDA-Public Use
  Company Number: US-ASTRAZENECA-2006UW11484

PATIENT
  Age: 17828 Day
  Sex: Female
  Weight: 93.9 kg

DRUGS (15)
  1. SEROQUEL [Suspect]
     Indication: ANXIETY
     Route: 048
     Dates: start: 20030101, end: 20050101
  2. SEROQUEL [Suspect]
     Indication: DEPRESSION
     Route: 048
     Dates: start: 20030101, end: 20050101
  3. SEROQUEL [Suspect]
     Dosage: 25 - 100 MG
     Route: 048
     Dates: start: 20040723
  4. SEROQUEL [Suspect]
     Dosage: 25 - 100 MG
     Route: 048
     Dates: start: 20040723
  5. RISPERDAL [Concomitant]
  6. CYMBALTA [Concomitant]
  7. WELLBUTRIN [Concomitant]
  8. ABILIFY [Concomitant]
     Dosage: 15 - 30 MG
     Dates: start: 20040801
  9. TRAZODONE [Concomitant]
     Dates: start: 20040801
  10. PROZAC [Concomitant]
     Dates: start: 20040326
  11. PAXIL [Concomitant]
     Dates: start: 20040601
  12. ASPIRIN [Concomitant]
     Dates: start: 20040717
  13. ATENOLOL [Concomitant]
     Dates: start: 20040717
  14. WELLBUTRIN SR [Concomitant]
     Dates: start: 20050418
  15. XANAX [Concomitant]
     Dates: start: 20060420

REACTIONS (4)
  - DIABETES MELLITUS [None]
  - DIABETIC NEUROPATHY [None]
  - HYPOGLYCAEMIA [None]
  - TYPE 2 DIABETES MELLITUS [None]
